FAERS Safety Report 7428521-8 (Version None)
Quarter: 2011Q2

REPORT INFORMATION
  Report Type: 
  Country: None (occurrence: None)
  Receive Date: 20110413
  Receipt Date: 20110329
  Transmission Date: 20111010
  Serious: Yes (Death, Other)
  Sender: FDA-Public Use
  Company Number: AUR-APL-2011-01130

PATIENT
  Age: 81 Year
  Sex: Male

DRUGS (2)
  1. FLUCLOXACILLIN AND FUSIDIC ACID/SODIUM FUSIDATE [Concomitant]
  2. SIMVASTATIN [Suspect]
     Dosage: 40MG

REACTIONS (2)
  - RENAL FAILURE ACUTE [None]
  - RHABDOMYOLYSIS [None]
